FAERS Safety Report 19303918 (Version 4)
Quarter: 2021Q3

REPORT INFORMATION
  Report Type: Spontaneous
  Country: US (occurrence: US)
  Receive Date: 20210525
  Receipt Date: 20210716
  Transmission Date: 20211014
  Serious: Yes (Other)
  Sender: FDA-Public Use
  Company Number: US-TEVA-2021-US-1916111

PATIENT
  Age: 23 Year
  Sex: Female

DRUGS (2)
  1. TRI?SPRINTEC [Suspect]
     Active Substance: ETHINYL ESTRADIOL\NORGESTIMATE
     Indication: CONTRACEPTION
     Dosage: 0.180 MG/ 0.035 MG; 0.215 MG / 0.035 MG; 0.250 MG / 0.035 MG
     Dates: start: 20200831, end: 20210505
  2. AMITRIPTYLINE [Concomitant]
     Active Substance: AMITRIPTYLINE
     Indication: DEPRESSION

REACTIONS (9)
  - Pregnancy on contraceptive [Unknown]
  - Maternal exposure during pregnancy [Unknown]
  - Concomitant disease aggravated [Unknown]
  - Depression [Unknown]
  - General physical health deterioration [Unknown]
  - Nausea [Unknown]
  - Back pain [Unknown]
  - Abortion induced [Unknown]
  - Pain [Unknown]

NARRATIVE: CASE EVENT DATE: 20210315
